FAERS Safety Report 11189565 (Version 2)
Quarter: 2019Q3

REPORT INFORMATION
  Report Type: Spontaneous
  Country: US (occurrence: US)
  Receive Date: 20150615
  Receipt Date: 20190822
  Transmission Date: 20191004
  Serious: Yes (Death, Hospitalization, Other)
  Sender: FDA-Public Use
  Company Number: US-009507513-1506USA007000

PATIENT
  Sex: Male
  Weight: 76.19 kg

DRUGS (2)
  1. JANUVIA [Suspect]
     Active Substance: SITAGLIPTIN PHOSPHATE
     Dosage: 25 MILLIGRAM, QD
     Route: 048
     Dates: start: 20101110, end: 201103
  2. JANUVIA [Suspect]
     Active Substance: SITAGLIPTIN PHOSPHATE
     Dosage: 50 MILLIGRAM, QD
     Route: 048
     Dates: start: 20110324, end: 201307

REACTIONS (26)
  - Pancreatic carcinoma [Fatal]
  - Vomiting [Unknown]
  - Haemangioma of bone [Unknown]
  - Stent placement [Unknown]
  - Bladder neck operation [Unknown]
  - Skin turgor decreased [Unknown]
  - Lymph node calcification [Unknown]
  - Abdominal pain [Not Recovered/Not Resolved]
  - Pulmonary mass [Unknown]
  - Renal cyst [Unknown]
  - Dehydration [Unknown]
  - Spinal osteoarthritis [Unknown]
  - Mesenteric artery thrombosis [Unknown]
  - Cachexia [Unknown]
  - Adenocarcinoma [Unknown]
  - Mesenteric arterial occlusion [Unknown]
  - Chest pain [Unknown]
  - Portal vein thrombosis [Unknown]
  - Procedural complication [Unknown]
  - Pulmonary granuloma [Unknown]
  - Pulmonary fibrosis [Unknown]
  - Arteriosclerosis coronary artery [Unknown]
  - Coronary artery disease [Unknown]
  - Portal vein occlusion [Unknown]
  - Emphysema [Unknown]
  - Prostatomegaly [Unknown]

NARRATIVE: CASE EVENT DATE: 2013
